FAERS Safety Report 4437610-1 (Version None)
Quarter: 2004Q3

REPORT INFORMATION
  Report Type: 
  Country: None (occurrence: None)
  Receive Date: 20040827
  Receipt Date: 20040812
  Transmission Date: 20050211
  Serious: Yes (Hospitalization)
  Sender: FDA-Public Use
  Company Number: 208610

PATIENT
  Age: 59 Year
  Sex: Female
  Weight: 75 kg

DRUGS (15)
  1. HERCEPTIN [Suspect]
     Indication: BREAST CANCER
     Dosage: SEE IMAGE
     Route: 042
     Dates: start: 20040128, end: 20040128
  2. HERCEPTIN [Suspect]
     Indication: BREAST CANCER
     Dosage: SEE IMAGE
     Route: 042
     Dates: start: 20040218
  3. DOCETAXEL (DOCETAXEL) [Suspect]
     Indication: BREAST CANCER METASTATIC
     Dosage: 190 MG, SINGLE, INTRAVENOUS
     Route: 042
     Dates: start: 20040129, end: 20040129
  4. ENEMA PHOSPHATE (PHOSPHATE NOS) [Concomitant]
  5. HARTMANN'S SOLUTION FOR INJECTION (RINGER'S INJECTION, LACTATED) [Concomitant]
  6. PIRITON (CHLORPHENIRAMINE MALEATE) [Concomitant]
  7. MOTILIUM [Concomitant]
  8. VALOID (CYCLIZINE HYDROCHLORIDE) [Concomitant]
  9. MEGACE [Concomitant]
  10. BUPRENORPHINE (BUPRENORPHINE HYDROCHLORIDE) [Concomitant]
  11. ZOFRAN [Concomitant]
  12. DEXAMETHAXSONE (DEXAMETHASONE) [Concomitant]
  13. CIMETIDINE [Concomitant]
  14. ATENOLOL [Concomitant]
  15. ZANEDIP (LERCANIDIPINE) [Concomitant]

REACTIONS (2)
  - HAEMOPTYSIS [None]
  - NEUTROPENIA [None]
